FAERS Safety Report 4811773-8 (Version None)
Quarter: 2005Q4

REPORT INFORMATION
  Report Type: 
  Country: None (occurrence: None)
  Receive Date: 20051028
  Receipt Date: 20041025
  Transmission Date: 20060501
  Serious: Yes (Other)
  Sender: FDA-Public Use
  Company Number: US-SOLVAY-00204003817

PATIENT
  Age: 10619 Day
  Sex: Male
  Weight: 113 kg

DRUGS (2)
  1. ANTIDEPRESSANTS [Concomitant]
     Indication: DEPRESSION
     Dosage: DAILY DOSE:  UNKNOWN
     Route: 048
  2. PROMETRIUM [Suspect]
     Indication: ILL-DEFINED DISORDER
     Dosage: DAILY DOSE: 400 MILLIGRAM(S)
     Route: 048
     Dates: start: 20041001, end: 20041018

REACTIONS (7)
  - ERECTILE DYSFUNCTION [None]
  - HOT FLUSH [None]
  - MEDICATION ERROR [None]
  - MOOD SWINGS [None]
  - SOMNOLENCE [None]
  - SPERM COUNT ZERO [None]
  - URTICARIA [None]
